FAERS Safety Report 4848413-8 (Version None)
Quarter: 2005Q4

REPORT INFORMATION
  Report Type: 
  Country: None (occurrence: None)
  Receive Date: 20051208
  Receipt Date: 20050912
  Transmission Date: 20060501
  Serious: Yes (Other)
  Sender: FDA-Public Use
  Company Number: FR-NOVOPROD-246918

PATIENT
  Age: 31 Year
  Sex: Male
  Weight: 62 kg

DRUGS (6)
  1. LEVEMIR [Suspect]
     Indication: DIABETES MELLITUS INSULIN-DEPENDENT
     Dosage: 15 IU, QD
     Dates: start: 20050810, end: 20050812
  2. NOVORAPID [Concomitant]
     Indication: DIABETES MELLITUS INSULIN-DEPENDENT
     Dosage: 24 IU, QD
     Route: 058
     Dates: start: 20041101
  3. TRIATEC [Concomitant]
     Dosage: 2.5 UNK, QD
     Route: 048
  4. TAHOR [Concomitant]
     Dosage: 20 MG, UNK
     Route: 048
     Dates: start: 20050101
  5. NEUROTON [Concomitant]
     Dosage: 800 MG, QD
     Route: 048
  6. VASTAREL ^BIOPHARMA^ [Concomitant]
     Dosage: 70 MG, QD
     Route: 048
     Dates: start: 20041201

REACTIONS (3)
  - INJECTION SITE HAEMORRHAGE [None]
  - INJECTION SITE NODULE [None]
  - INJECTION SITE PAIN [None]
